FAERS Safety Report 5441230-X (Version None)
Quarter: 2007Q3

REPORT INFORMATION
  Report Type: 
  Country: None (occurrence: None)
  Receive Date: 20070901
  Receipt Date: 20070824
  Transmission Date: 20080115
  Serious: Yes (Death)
  Sender: FDA-Public Use
  Company Number: US-SANOFI-SYNTHELABO-A03200705331

PATIENT
  Sex: Male

DRUGS (2)
  1. COUMADIN [Concomitant]
     Dosage: UNK
     Route: 048
     Dates: end: 20061201
  2. PLAVIX [Suspect]
     Indication: ATRIAL FIBRILLATION
     Route: 048

REACTIONS (1)
  - DEATH [None]
